FAERS Safety Report 7414102-9 (Version None)
Quarter: 2011Q2

REPORT INFORMATION
  Report Type: 
  Country: None (occurrence: None)
  Receive Date: 20110411
  Receipt Date: 20110411
  Transmission Date: 20111010
  Serious: Yes (Life-Threatening, Hospitalization, Disabling)
  Sender: FDA-Public Use
  Company Number: None

PATIENT
  Sex: Female
  Weight: 90.9 kg

DRUGS (1)
  1. COUMADIN [Suspect]
     Indication: HYPOTENSION
     Dosage: 7.5 MILLIGRAMS 1 EVERY EVENING ORAL
     Route: 048
     Dates: start: 20110127, end: 20110221

REACTIONS (10)
  - CHEST PAIN [None]
  - CONDITION AGGRAVATED [None]
  - BACK PAIN [None]
  - PYREXIA [None]
  - DYSPNOEA [None]
  - SPEECH DISORDER [None]
  - SCREAMING [None]
  - NAUSEA [None]
  - CARDIAC DISORDER [None]
  - WHEEZING [None]
